FAERS Safety Report 8098206-6 (Version None)
Quarter: 2012Q1

REPORT INFORMATION
  Report Type: 
  Country: None (occurrence: None)
  Receive Date: 20120128
  Receipt Date: 20110715
  Transmission Date: 20120608
  Serious: No
  Sender: FDA-Public Use
  Company Number: US-ABBOTT-11P-163-0840045-00

PATIENT
  Sex: Female

DRUGS (2)
  1. HUMIRA [Suspect]
     Indication: CROHN'S DISEASE
     Route: 058
     Dates: start: 20110201, end: 20110718
  2. XANAX [Concomitant]
     Indication: PRODUCT USED FOR UNKNOWN INDICATION

REACTIONS (10)
  - DIZZINESS [None]
  - INCREASED TENDENCY TO BRUISE [None]
  - CHEST DISCOMFORT [None]
  - FATIGUE [None]
  - INJECTION SITE ERYTHEMA [None]
  - INJECTION SITE HAEMATOMA [None]
  - INJECTION SITE INDURATION [None]
  - ASTHENIA [None]
  - DYSPNOEA [None]
  - JOINT SWELLING [None]
